FAERS Safety Report 10159965 (Version 1)
Quarter: 2014Q2

REPORT INFORMATION
  Report Type: Spontaneous
  Country: US (occurrence: US)
  Receive Date: 20140508
  Receipt Date: 20140508
  Transmission Date: 20141212
  Serious: No
  Sender: FDA-Public Use
  Company Number: US-GLAXOSMITHKLINE-A1046113A

PATIENT
  Age: 54 Year
  Sex: Female

DRUGS (9)
  1. TYKERB [Suspect]
     Indication: BREAST CANCER
     Dosage: 5TAB PER DAY
     Route: 048
     Dates: start: 20131011, end: 20131015
  2. POTASSIUM [Concomitant]
  3. MAGNESIUM OXIDE [Concomitant]
  4. GABAPENTIN [Concomitant]
  5. MULTIVITAMIN [Concomitant]
  6. OMEPRAZOLE [Concomitant]
  7. VITAMIN D [Concomitant]
  8. MONTELUKAST [Concomitant]
  9. LISINOPRIL [Concomitant]

REACTIONS (3)
  - Diarrhoea [Recovering/Resolving]
  - Decreased appetite [Recovering/Resolving]
  - Feeling abnormal [Recovering/Resolving]
